FAERS Safety Report 5563329-X (Version None)
Quarter: 2007Q4

REPORT INFORMATION
  Report Type: 
  Country: None (occurrence: None)
  Receive Date: 20071217
  Receipt Date: 20071204
  Transmission Date: 20080405
  Serious: Yes (Life-Threatening, Hospitalization)
  Sender: FDA-Public Use
  Company Number: US-ROCHE-533898

PATIENT
  Age: 45 Year
  Sex: Female
  Weight: 100.9 kg

DRUGS (7)
  1. PEG-INTERFERON ALFA 2A (RO 25-8310) [Suspect]
     Dosage: FORM REPORTED AS LIQUID.
     Route: 058
     Dates: start: 20070613, end: 20071121
  2. BLINDED RIBAVIRIN [Suspect]
     Route: 048
     Dates: start: 20070613, end: 20071121
  3. BLINDED RIBAVIRIN [Suspect]
     Route: 048
     Dates: start: 20070818
  4. IBUPROFEN [Concomitant]
     Dosage: REPORTED AS ADVIL.
     Dates: start: 20070613
  5. CLONAZEPAM [Concomitant]
  6. LORAZEPAM [Concomitant]
     Dates: start: 20070918
  7. BUPROPION HCL [Concomitant]

REACTIONS (3)
  - ALCOHOL ABUSE [None]
  - GENERALISED ANXIETY DISORDER [None]
  - MAJOR DEPRESSION [None]
